FAERS Safety Report 14423936 (Version 1)
Quarter: 2018Q1

REPORT INFORMATION
  Report Type: Spontaneous
  Country: US (occurrence: US)
  Receive Date: 20180122
  Receipt Date: 20180122
  Transmission Date: 20180509
  Serious: Yes (Life-Threatening)
  Sender: FDA-Public Use
  Company Number: None

PATIENT
  Age: 56 Year
  Sex: Female
  Weight: 112.04 kg

DRUGS (9)
  1. FISH OIL [Concomitant]
     Active Substance: FISH OIL
  2. MVI [Concomitant]
     Active Substance: VITAMINS
  3. NORVASC [Concomitant]
     Active Substance: AMLODIPINE BESYLATE
  4. ASA [Concomitant]
     Active Substance: ASPIRIN
  5. TOPIRAMATE. [Concomitant]
     Active Substance: TOPIRAMATE
  6. CELECOXIB 200MG [Suspect]
     Active Substance: CELECOXIB
     Indication: CERVICAL RADICULOPATHY
     Route: 048
     Dates: start: 20170511, end: 20171219
  7. MEDROL [Concomitant]
     Active Substance: METHYLPREDNISOLONE
  8. CELECOXIB 200MG [Suspect]
     Active Substance: CELECOXIB
     Indication: LIGAMENT RUPTURE
     Route: 048
     Dates: start: 20170511, end: 20171219
  9. CELECOXIB. [Concomitant]
     Active Substance: CELECOXIB

REACTIONS (1)
  - Ventricular extrasystoles [None]

NARRATIVE: CASE EVENT DATE: 20170905
